FAERS Safety Report 9195057 (Version 1)
Quarter: 2013Q1

REPORT INFORMATION
  Report Type: Spontaneous
  Country: US (occurrence: US)
  Receive Date: 20130328
  Receipt Date: 20130328
  Transmission Date: 20140127
  Serious: No
  Sender: FDA-Public Use
  Company Number: US-ALLERGAN-1215326US

PATIENT
  Age: 61 Year
  Sex: Female

DRUGS (2)
  1. LATISSE 0.03% [Suspect]
     Indication: GROWTH OF EYELASHES
     Dosage: 1 GTT, UNK
     Route: 061
  2. EVISTA                             /01303201/ [Concomitant]
     Indication: BONE DISORDER
     Dosage: UNK UNK, QD
     Route: 048

REACTIONS (8)
  - Wrong technique in drug usage process [Unknown]
  - Inappropriate schedule of drug administration [Unknown]
  - Inappropriate schedule of drug administration [Unknown]
  - Incorrect dose administered [Unknown]
  - Trichiasis [Unknown]
  - Madarosis [Recovering/Resolving]
  - Madarosis [Recovering/Resolving]
  - Blepharitis [Recovering/Resolving]
